FAERS Safety Report 7025723-X (Version None)
Quarter: 2010Q4

REPORT INFORMATION
  Report Type: 
  Country: None (occurrence: None)
  Receive Date: 20101004
  Receipt Date: 20100923
  Transmission Date: 20110411
  Serious: Yes (Hospitalization)
  Sender: FDA-Public Use
  Company Number: US-BIOGENIDEC-2010BI033034

PATIENT
  Age: 56 Year
  Sex: Female

DRUGS (1)
  1. TYSABRI [Suspect]
     Indication: MULTIPLE SCLEROSIS
     Route: 042
     Dates: start: 20080602

REACTIONS (7)
  - APPLICATION SITE EXFOLIATION [None]
  - ARTHROPATHY [None]
  - BLISTER [None]
  - HYPERSENSITIVITY [None]
  - IMPAIRED HEALING [None]
  - SKIN EXFOLIATION [None]
  - SWELLING [None]
